FAERS Safety Report 9775861 (Version 1)
Quarter: 2013Q4

REPORT INFORMATION
  Report Type: Spontaneous
  Country: JP (occurrence: JP)
  Receive Date: 20131220
  Receipt Date: 20131220
  Transmission Date: 20140711
  Serious: Yes (Other)
  Sender: FDA-Public Use
  Company Number: JP-TEVA-450843ISR

PATIENT
  Sex: 0

DRUGS (1)
  1. PRELON,TAB [Suspect]

REACTIONS (2)
  - Urinary retention [Unknown]
  - Micturition frequency decreased [Unknown]
